FAERS Safety Report 4977448-X (Version None)
Quarter: 2006Q2

REPORT INFORMATION
  Report Type: 
  Country: None (occurrence: None)
  Receive Date: 20060413
  Receipt Date: 20060329
  Transmission Date: 20061013
  Serious: Yes (Other)
  Sender: FDA-Public Use
  Company Number: A-US2006-11892

PATIENT
  Age: 20 Year
  Sex: Female
  Weight: 67 kg

DRUGS (3)
  1. TRACLEER [Suspect]
     Indication: PULMONARY HYPERTENSION
     Dosage: SEE IMAGE
     Route: 048
     Dates: start: 20050319, end: 20050415
  2. TRACLEER [Suspect]
     Indication: PULMONARY HYPERTENSION
     Dosage: SEE IMAGE
     Route: 048
     Dates: start: 20050416, end: 20060104
  3. SILDENAFIL CITRATE [Suspect]
     Dosage: 50 MG
     Dates: start: 20050928

REACTIONS (2)
  - DRUG INTERACTION [None]
  - HEPATITIS [None]
